FAERS Safety Report 10077367 (Version 1)
Quarter: 2014Q2

REPORT INFORMATION
  Report Type: Spontaneous
  Country: DE (occurrence: DE)
  Receive Date: 20140414
  Receipt Date: 20140414
  Transmission Date: 20141212
  Serious: Yes (Hospitalization)
  Sender: FDA-Public Use
  Company Number: DE-WATSON-2013-25393

PATIENT
  Age: 29 Year
  Sex: Female

DRUGS (3)
  1. SERTRALINE (UNKNOWN) [Suspect]
     Indication: PRODUCT USED FOR UNKNOWN INDICATION
     Dosage: 50 MG, DAILY
     Route: 048
  2. ZYPREXA [Suspect]
     Indication: PRODUCT USED FOR UNKNOWN INDICATION
     Dosage: 12.5 MG, DAILY
     Route: 048
     Dates: start: 20121019, end: 20121104
  3. ZYPREXA [Suspect]
     Dosage: 10 MG, DAILY
     Route: 048
     Dates: start: 20121011, end: 20121018

REACTIONS (1)
  - Transaminases increased [Recovered/Resolved]
